FAERS Safety Report 9418139 (Version 1)
Quarter: 2013Q3

REPORT INFORMATION
  Report Type: Spontaneous
  Country: US (occurrence: US)
  Receive Date: 20130724
  Receipt Date: 20130724
  Transmission Date: 20140515
  Serious: Yes (Disabling)
  Sender: FDA-Public Use
  Company Number: US-ASTRAZENECA-2013SE52806

PATIENT
  Age: 49 Year
  Sex: Female
  Weight: 90.7 kg

DRUGS (3)
  1. ENTOCORT EC [Suspect]
     Indication: HEPATITIS
     Route: 048
     Dates: start: 2012, end: 201304
  2. ENTOCORT EC [Suspect]
     Indication: DIARRHOEA
     Route: 048
     Dates: start: 2012, end: 201304
  3. LISINOPRIL [Concomitant]
     Indication: GLOMERULONEPHRITIS
     Route: 048
     Dates: start: 1997

REACTIONS (4)
  - Hepatic failure [Not Recovered/Not Resolved]
  - Diarrhoea [Not Recovered/Not Resolved]
  - Intentional drug misuse [Unknown]
  - Off label use [Recovered/Resolved]
